FAERS Safety Report 21698955 (Version 1)
Quarter: 2022Q4

REPORT INFORMATION
  Report Type: Spontaneous
  Country: GB (occurrence: GB)
  Receive Date: 20221208
  Receipt Date: 20221208
  Transmission Date: 20230113
  Serious: Yes (Other)
  Sender: FDA-Public Use
  Company Number: None

PATIENT
  Age: 31 Year
  Sex: Male
  Weight: 95 kg

DRUGS (7)
  1. LEVOCETIRIZINE [Suspect]
     Active Substance: LEVOCETIRIZINE
     Dates: start: 20220527
  2. BENZOYL PEROXIDE [Concomitant]
     Active Substance: BENZOYL PEROXIDE
     Dosage: APPLY AT NIGHT
     Dates: start: 20220905, end: 20221003
  3. BISOPROLOL [Concomitant]
     Active Substance: BISOPROLOL
     Dosage: CAN BE INCREASED TO 2 DAILY IF ...
     Dates: start: 20221128
  4. DUAC [Concomitant]
     Active Substance: BENZOYL PEROXIDE\CLINDAMYCIN PHOSPHATE
     Dosage: APPLY AT NIGHT
     Dates: start: 20190923
  5. FEXOFENADINE [Concomitant]
     Active Substance: FEXOFENADINE HYDROCHLORIDE
     Dosage: TAKE ONE UP TO FOUR TIMES DAILY AS REQUIRED
     Dates: start: 20220527
  6. PROPRANOLOL [Concomitant]
     Active Substance: PROPRANOLOL HYDROCHLORIDE
     Dosage: WHEN REQUIRED
     Dates: start: 20220913, end: 20221128
  7. SALOFALK [Concomitant]
     Dosage: INSERT AT NIGHT AS DIRECTED
     Dates: start: 20211101

REACTIONS (2)
  - Atrial fibrillation [Not Recovered/Not Resolved]
  - Palpitations [Unknown]

NARRATIVE: CASE EVENT DATE: 20221128
